FAERS Safety Report 13142319 (Version 3)
Quarter: 2017Q2

REPORT INFORMATION
  Report Type: Spontaneous
  Country: US (occurrence: US)
  Receive Date: 20170124
  Receipt Date: 20170411
  Transmission Date: 20170830
  Serious: No
  Sender: FDA-Public Use
  Company Number: US-BAYER-2017-011310

PATIENT
  Sex: Female

DRUGS (1)
  1. MIRALAX [Suspect]
     Active Substance: POLYETHYLENE GLYCOL 3350
     Indication: IMPAIRED GASTRIC EMPTYING
     Dosage: 1 DF, QD
     Route: 048
     Dates: end: 20170126

REACTIONS (3)
  - Retching [Recovered/Resolved]
  - Product use issue [Unknown]
  - Product solubility abnormal [None]

NARRATIVE: CASE EVENT DATE: 20170117
